FAERS Safety Report 9054827 (Version 2)
Quarter: 2013Q1

REPORT INFORMATION
  Report Type: Spontaneous
  Country: GB (occurrence: GB)
  Receive Date: 20130208
  Receipt Date: 20130221
  Transmission Date: 20140127
  Serious: Yes (Life-Threatening, Hospitalization)
  Sender: FDA-Public Use
  Company Number: GB-SANOFI-AVENTIS-2013SA010563

PATIENT
  Age: 63 Year
  Sex: Male

DRUGS (11)
  1. PLAVIX [Suspect]
     Indication: PRODUCT USED FOR UNKNOWN INDICATION
     Dosage: TO STOP IN JUNE 2013 (12 MONTHS POST PERCUTANEOUS CORONARY INTERVERTION).
     Route: 048
  2. WARFARIN [Suspect]
     Indication: PRODUCT USED FOR UNKNOWN INDICATION
     Route: 048
  3. ASPIRIN [Suspect]
     Indication: PRODUCT USED FOR UNKNOWN INDICATION
     Route: 048
  4. BISOPROLOL FUMARATE [Concomitant]
     Dosage: ONGOING
     Route: 048
  5. DIGOXIN [Concomitant]
     Dosage: ONGOING
     Route: 048
  6. EPLERENONE [Concomitant]
     Dosage: ONGOING
  7. FUROSEMIDE [Concomitant]
     Dosage: IN THE MORNING.
     Route: 048
  8. GLYCERYL TRINITRATE [Concomitant]
     Indication: CHEST PAIN
     Dosage: ONE OR TWO SPRAYS WHEN NECESSSARY.
     Route: 060
  9. NIQUITIN [Concomitant]
     Dosage: ONGOING
     Route: 062
  10. SIMVASTATIN [Concomitant]
     Dosage: AT NIGHT - ONGOING
     Route: 048
  11. FERROUS SULPHATE [Concomitant]
     Route: 048

REACTIONS (2)
  - Haemorrhage [Unknown]
  - International normalised ratio increased [Unknown]
